FAERS Safety Report 21396578 (Version 1)
Quarter: 2022Q3

REPORT INFORMATION
  Report Type: Spontaneous
  Country: DE (occurrence: None)
  Receive Date: 20220930
  Receipt Date: 20220930
  Transmission Date: 20221027
  Serious: Yes (Hospitalization)
  Sender: FDA-Public Use
  Company Number: 2022A326796

PATIENT
  Age: 54 Year
  Sex: Male

DRUGS (8)
  1. BUDESONIDE [Suspect]
     Active Substance: BUDESONIDE
     Dosage: 200 UG, 1-0-1-0
     Route: 055
  2. CARVEDILOL [Suspect]
     Active Substance: CARVEDILOL
     Dosage: 25 MG, 1-0-1-0
     Route: 048
  3. CALCIUM D3 ACIS [Concomitant]
     Dosage: 880/1000 IU / MG, 1-0-0-0
     Route: 048
  4. AMLODIPINE [Concomitant]
     Active Substance: AMLODIPINE BESYLATE
     Dosage: 5 MG, 0.5-0-1-0
     Route: 048
  5. GLYCOPYRRONIUM\INDACATEROL [Concomitant]
     Active Substance: GLYCOPYRRONIUM\INDACATEROL
     Dosage: 43/85 UG, 1-0-0-0
     Route: 055
  6. SPIRONOLACTONE [Concomitant]
     Active Substance: SPIRONOLACTONE
     Dosage: 100 MG, 1-0-0-0
     Route: 048
  7. TILIDINE HYDROCHLORIDE/NALOXONE HYDROCHLORIDE [Concomitant]
     Dosage: 8/100 MG, 1-0-0-0
     Route: 048
  8. RAMIPRIL [Concomitant]
     Active Substance: RAMIPRIL
     Dosage: 5 MG, 1-0-1-0
     Route: 048

REACTIONS (1)
  - Dyspnoea [Unknown]

NARRATIVE: CASE EVENT DATE: 20200606
